FAERS Safety Report 23183713 (Version 1)
Quarter: 2023Q4

REPORT INFORMATION
  Report Type: Spontaneous
  Country: None (occurrence: US)
  Receive Date: 20231114
  Receipt Date: 20231114
  Transmission Date: 20240110
  Serious: No
  Sender: FDA-Public Use
  Company Number: US-Harrow Eye-2148277

PATIENT
  Age: 90 Year
  Sex: Female

DRUGS (7)
  1. ILEVRO [Suspect]
     Active Substance: NEPAFENAC
     Indication: Glaucoma
     Dates: start: 20230325
  2. CARTEOLOL [Concomitant]
     Active Substance: CARTEOLOL
  3. AMLODIPINE [Concomitant]
     Active Substance: AMLODIPINE BESYLATE
  4. FUROSEMIDE [Concomitant]
     Active Substance: FUROSEMIDE
  5. COZAAR [Concomitant]
     Active Substance: LOSARTAN POTASSIUM
  6. XARELTO [Concomitant]
     Active Substance: RIVAROXABAN
  7. PREDNISOLONE ACETATE [Concomitant]
     Active Substance: PREDNISOLONE ACETATE

REACTIONS (4)
  - Eye infection [Unknown]
  - Product packaging quantity issue [Unknown]
  - Product dose omission issue [Unknown]
  - Product use in unapproved indication [Unknown]
